FAERS Safety Report 13984422 (Version 3)
Quarter: 2017Q4

REPORT INFORMATION
  Report Type: Spontaneous
  Country: DE (occurrence: DE)
  Receive Date: 20170918
  Receipt Date: 20171027
  Transmission Date: 20180321
  Serious: Yes (Life-Threatening, Hospitalization, Other)
  Sender: FDA-Public Use
  Company Number: PHHY2017DE136491

PATIENT
  Age: 70 Year
  Sex: Male
  Weight: 102 kg

DRUGS (19)
  1. BISOPROLOL [Concomitant]
     Active Substance: BISOPROLOL
     Indication: CARDIAC FAILURE
     Dosage: 5 MG, UNK
     Route: 048
  2. MARCUMAR [Concomitant]
     Active Substance: PHENPROCOUMON
     Indication: ATRIAL FIBRILLATION
  3. ENTRESTO [Suspect]
     Active Substance: SACUBITRIL\VALSARTAN
     Indication: CONGESTIVE CARDIOMYOPATHY
     Dosage: 50 MG (24/26 MG)
     Route: 065
     Dates: start: 201703
  4. ENTRESTO [Suspect]
     Active Substance: SACUBITRIL\VALSARTAN
     Dosage: 1 DF (24/26 MG), BID
     Route: 065
  5. MARCUMAR [Concomitant]
     Active Substance: PHENPROCOUMON
     Indication: AORTIC VALVE REPLACEMENT
     Dosage: 3 MG, TO TARGETINR 2.5 TO 3.5
     Route: 048
  6. ATORVASTATIN [Concomitant]
     Active Substance: ATORVASTATIN
     Indication: PERIPHERAL ARTERIAL OCCLUSIVE DISEASE
     Dosage: 1 DF (20 MG), QD
     Route: 048
  7. PANTOPRAZOLE [Concomitant]
     Active Substance: PANTOPRAZOLE
     Dosage: 1 DF (20 MG), QD
     Route: 065
  8. TINZAPARIN [Concomitant]
     Active Substance: TINZAPARIN
     Indication: PRODUCT USED FOR UNKNOWN INDICATION
     Dosage: 0.8 ML, TO TARGET INR LESS THAN 2.5
     Route: 058
  9. ENTRESTO [Suspect]
     Active Substance: SACUBITRIL\VALSARTAN
     Dosage: 1 DF (49/51 MG), BID
     Route: 065
  10. ENTRESTO [Suspect]
     Active Substance: SACUBITRIL\VALSARTAN
     Dosage: UNK
     Route: 065
  11. BISOPROLOL [Concomitant]
     Active Substance: BISOPROLOL
     Dosage: 1 DF (2.5 MG), BID
  12. TORASEMIDE [Concomitant]
     Active Substance: TORSEMIDE
     Indication: CARDIAC FAILURE
     Dosage: 3 DF (20 MG), QD
     Route: 048
  13. CLOPIDOGREL [Concomitant]
     Active Substance: CLOPIDOGREL BISULFATE
     Indication: ANGIOPLASTY
     Dosage: 75 MG, UNK
     Route: 065
  14. ENTRESTO [Suspect]
     Active Substance: SACUBITRIL\VALSARTAN
     Dosage: 200 MG (97/103 MG), BID
     Route: 065
  15. QUETIAPIN [Concomitant]
     Active Substance: QUETIAPINE
     Indication: DEPRESSION
     Dosage: UNK
     Route: 065
     Dates: end: 201708
  16. TORASEMIDE [Concomitant]
     Active Substance: TORSEMIDE
     Dosage: 1 DF (50 MG), QD
  17. PANTOPRAZOLE [Concomitant]
     Active Substance: PANTOPRAZOLE
     Indication: PRODUCT USED FOR UNKNOWN INDICATION
     Dosage: 1 DF (40 MG), QD
     Route: 065
  18. EPLERENONE. [Concomitant]
     Active Substance: EPLERENONE
     Indication: CARDIAC FAILURE
     Dosage: 1 DF (25 MG), QD
     Route: 048
     Dates: start: 201709
  19. FERRO SANOL [Concomitant]
     Active Substance: FERROUS GLYCINE SULFATE
     Indication: PRODUCT USED FOR UNKNOWN INDICATION
     Route: 065

REACTIONS (16)
  - Hypokalaemia [Recovered/Resolved]
  - Hypotension [Unknown]
  - Ventricular fibrillation [Unknown]
  - Device inappropriate shock delivery [Unknown]
  - Weight decreased [Unknown]
  - Diarrhoea [Recovered/Resolved]
  - Loss of consciousness [Unknown]
  - Nausea [Unknown]
  - Dyspnoea [Unknown]
  - Splenomegaly [Unknown]
  - Cardiac failure [Unknown]
  - Vomiting [Unknown]
  - General physical health deterioration [Unknown]
  - Tricuspid valve disease [Unknown]
  - Device issue [Recovering/Resolving]
  - Pleural effusion [Unknown]

NARRATIVE: CASE EVENT DATE: 201706
